FAERS Safety Report 13951272 (Version 1)
Quarter: 2017Q3

REPORT INFORMATION
  Report Type: Spontaneous
  Country: US (occurrence: US)
  Receive Date: 20170908
  Receipt Date: 20170908
  Transmission Date: 20171128
  Serious: No
  Sender: FDA-Public Use
  Company Number: US-JAZZ-2017-US-009149

PATIENT
  Sex: Male

DRUGS (22)
  1. HYDROCODONE BITARTRATE AND ACETAMINOPHEN [Concomitant]
     Active Substance: ACETAMINOPHEN\HYDROCODONE BITARTRATE
  2. SEROQUEL [Concomitant]
     Active Substance: QUETIAPINE FUMARATE
  3. XYREM [Suspect]
     Active Substance: SODIUM OXYBATE
     Dosage: 3G, BID
     Route: 048
     Dates: start: 201705
  4. LIOTHYRONINE SOD. [Concomitant]
  5. LITHIUM. [Concomitant]
     Active Substance: LITHIUM
  6. XYREM [Suspect]
     Active Substance: SODIUM OXYBATE
     Dosage: DOSE ADJUSTMENT
     Route: 048
     Dates: start: 201402, end: 201705
  7. MELOXICAM. [Concomitant]
     Active Substance: MELOXICAM
  8. NORVASC [Concomitant]
     Active Substance: AMLODIPINE BESYLATE
  9. ZOLPIDEM TARTRATE. [Concomitant]
     Active Substance: ZOLPIDEM TARTRATE
  10. GABAPENTIN. [Concomitant]
     Active Substance: GABAPENTIN
  11. VITAMIN D                          /00107901/ [Concomitant]
     Active Substance: ERGOCALCIFEROL
  12. XYREM [Suspect]
     Active Substance: SODIUM OXYBATE
     Indication: NARCOLEPSY
     Dosage: 3G, BID
     Route: 048
     Dates: start: 201311, end: 2014
  13. NASALCROM [Concomitant]
     Active Substance: CROMOLYN SODIUM
  14. FINASTERIDE. [Concomitant]
     Active Substance: FINASTERIDE
  15. TERAZOSIN [Concomitant]
     Active Substance: TERAZOSIN\TERAZOSIN HYDROCHLORIDE
  16. VENLAFAXINE HCL [Concomitant]
     Active Substance: VENLAFAXINE HYDROCHLORIDE
  17. ASTEPRO [Concomitant]
     Active Substance: AZELASTINE HYDROCHLORIDE
  18. DEXTROAMPHETAMINE                  /00016601/ [Concomitant]
     Active Substance: DEXTROAMPHETAMINE
  19. FISH OIL CONCENTRATE [Concomitant]
     Active Substance: FISH OIL
  20. IRBESARTAN. [Concomitant]
     Active Substance: IRBESARTAN
  21. SYNTHROID [Concomitant]
     Active Substance: LEVOTHYROXINE SODIUM
  22. SINGULAIR [Concomitant]
     Active Substance: MONTELUKAST SODIUM

REACTIONS (1)
  - Abnormal sleep-related event [Recovered/Resolved]
